FAERS Safety Report 8447238-4 (Version None)
Quarter: 2012Q2

REPORT INFORMATION
  Report Type: 
  Country: None (occurrence: None)
  Receive Date: 20120619
  Receipt Date: 20120613
  Transmission Date: 20120825
  Serious: No
  Sender: FDA-Public Use
  Company Number: US-PFIZER INC-2012143663

PATIENT
  Sex: Female
  Weight: 54 kg

DRUGS (1)
  1. PIROXICAM [Suspect]
     Indication: ARTHRITIS
     Dosage: 20 MG, ALTERNATE DAY

REACTIONS (1)
  - BLOOD PRESSURE INCREASED [None]
